FAERS Safety Report 5678092-1 (Version None)
Quarter: 2008Q1

REPORT INFORMATION
  Report Type: 
  Country: None (occurrence: None)
  Receive Date: 20080319
  Receipt Date: 20080303
  Transmission Date: 20080703
  Serious: Yes (Other)
  Sender: FDA-Public Use
  Company Number: 230001E08FRA

PATIENT
  Age: 30 Year
  Sex: Female
  Weight: 53 kg

DRUGS (4)
  1. REBIF [Suspect]
     Indication: MULTIPLE SCLEROSIS
     Dosage: 3  IN 1 WEEKS, SUBCUTANEOUS
     Route: 058
     Dates: start: 20070620, end: 20080304
  2. PLACEBO(PLACEBO) [Suspect]
     Indication: MULTIPLE SCLEROSIS
     Dosage: 100 MG, 2 IN 1 DAYS, ORAL
     Route: 048
     Dates: start: 20070919, end: 20080304
  3. DIHYDROERGOTAMINE [Concomitant]
  4. LEVOCARNITINE [Concomitant]

REACTIONS (1)
  - RETINOPATHY [None]
